FAERS Safety Report 21356488 (Version 1)
Quarter: 2022Q3

REPORT INFORMATION
  Report Type: Report from Study
  Country: CA (occurrence: CA)
  Receive Date: 20220920
  Receipt Date: 20220920
  Transmission Date: 20221027
  Serious: Yes (Other)
  Sender: FDA-Public Use
  Company Number: CA-JNJFOC-20220541848

PATIENT
  Age: 55 Year
  Sex: Female

DRUGS (1)
  1. REMICADE [Suspect]
     Active Substance: INFLIXIMAB
     Indication: Rheumatoid arthritis
     Dosage: LAST TREATMENT WAS ON 29-MAR-2022
     Route: 042
     Dates: start: 20130220

REACTIONS (12)
  - Syncope [Unknown]
  - Fibromyalgia [Unknown]
  - COVID-19 [Unknown]
  - Oropharyngeal pain [Unknown]
  - Malaise [Unknown]
  - Frustration tolerance decreased [Unknown]
  - Chest discomfort [Unknown]
  - Vomiting [Unknown]
  - Headache [Unknown]
  - Diarrhoea [Unknown]
  - Nausea [Unknown]
  - Dizziness [Unknown]

NARRATIVE: CASE EVENT DATE: 20220514
